FAERS Safety Report 9170799 (Version 1)
Quarter: 2013Q1

REPORT INFORMATION
  Report Type: Spontaneous
  Country: GB (occurrence: None)
  Receive Date: 20130311
  Receipt Date: 20130311
  Transmission Date: 20140127
  Serious: Yes (Other)
  Sender: FDA-Public Use
  Company Number: GER/UKI/13/0028399

PATIENT
  Age: 64 Year
  Sex: Male
  Weight: 82 kg

DRUGS (2)
  1. LEVETIRACETAM (LEVETIRACETAM) [Suspect]
     Indication: EPILEPSY
     Dates: start: 20121216, end: 20130208
  2. PHENYTOIN (PHENYTOIN) [Concomitant]

REACTIONS (5)
  - Headache [None]
  - Dizziness [None]
  - Confusional state [None]
  - Slow response to stimuli [None]
  - Gait disturbance [None]
